FAERS Safety Report 7705434-5 (Version None)
Quarter: 2011Q3

REPORT INFORMATION
  Report Type: 
  Country: None (occurrence: None)
  Receive Date: 20110824
  Receipt Date: 20110811
  Transmission Date: 20111222
  Serious: Yes (Other)
  Sender: FDA-Public Use
  Company Number: JP-UCBSA-039108

PATIENT

DRUGS (1)
  1. KEPPRA [Suspect]
     Route: 048

REACTIONS (2)
  - NEPHROTIC SYNDROME [None]
  - PROTEINURIA [None]
